FAERS Safety Report 18188155 (Version 1)
Quarter: 2020Q3

REPORT INFORMATION
  Report Type: Report from Study
  Country: DE (occurrence: DE)
  Receive Date: 20200824
  Receipt Date: 20200824
  Transmission Date: 20201103
  Serious: No
  Sender: FDA-Public Use
  Company Number: DE-CELGENEUS-THADE200700043

PATIENT
  Age: 51 Year
  Sex: Male
  Weight: 78 kg

DRUGS (3)
  1. RILUTEK [Concomitant]
     Active Substance: RILUZOLE
     Indication: AMYOTROPHIC LATERAL SCLEROSIS
     Dosage: 100 MG
     Route: 048
     Dates: start: 20050202
  2. THALIDOMIDE PHARMION [Suspect]
     Active Substance: THALIDOMIDE
     Indication: AMYOTROPHIC LATERAL SCLEROSIS
     Dosage: GRADUALLY INCREASED FROM 100 MG/DAY TO 400 MG/DAY
     Route: 048
     Dates: start: 20060207, end: 20060503
  3. VITAMIN E [Concomitant]
     Active Substance: .ALPHA.-TOCOPHEROL
     Indication: AMYOTROPHIC LATERAL SCLEROSIS
     Route: 065
     Dates: start: 20060202

REACTIONS (4)
  - Lethargy [Recovered/Resolved]
  - Hypoventilation [Recovered/Resolved]
  - Bradycardia [Recovered/Resolved]
  - Asthenia [Recovered/Resolved]

NARRATIVE: CASE EVENT DATE: 20060403
